FAERS Safety Report 7171624-6 (Version None)
Quarter: 2010Q4

REPORT INFORMATION
  Report Type: 
  Country: None (occurrence: None)
  Receive Date: 20101217
  Receipt Date: 20101214
  Transmission Date: 20110411
  Serious: Yes (Life-Threatening, Hospitalization, Disabling, Other)
  Sender: FDA-Public Use
  Company Number: CA-ABBOTT-08P-028-0438691-00

PATIENT
  Sex: Female

DRUGS (4)
  1. BIAXIN XL [Suspect]
     Indication: PNEUMONIA
     Dosage: TWO TABLETS AT SUPPER TIME
     Route: 048
     Dates: start: 20050921, end: 20050924
  2. PREMARIN [Interacting]
     Indication: PRODUCT USED FOR UNKNOWN INDICATION
  3. DIXARIT [Concomitant]
     Indication: MENOPAUSAL SYMPTOMS
  4. TYLENOL (CAPLET) [Concomitant]
     Indication: PRODUCT USED FOR UNKNOWN INDICATION

REACTIONS (21)
  - ACTIVITIES OF DAILY LIVING IMPAIRED [None]
  - ANXIETY [None]
  - DYSPNOEA [None]
  - FALL [None]
  - FATIGUE [None]
  - FEELING ABNORMAL [None]
  - FRUSTRATION [None]
  - HAEMORRHAGE [None]
  - HALLUCINATION [None]
  - HALLUCINATION, AUDITORY [None]
  - INJURY [None]
  - INTENTIONAL SELF-INJURY [None]
  - JOINT INJURY [None]
  - MALAISE [None]
  - PAIN [None]
  - PARALYSIS [None]
  - PSYCHOTIC DISORDER [None]
  - SKIN LACERATION [None]
  - STRESS [None]
  - SUICIDE ATTEMPT [None]
  - UNEVALUABLE EVENT [None]
